FAERS Safety Report 14170548 (Version 1)
Quarter: 2017Q4

REPORT INFORMATION
  Report Type: Other
  Country: FR (occurrence: FR)
  Receive Date: 20171108
  Receipt Date: 20171108
  Transmission Date: 20180321
  Serious: Yes (Hospitalization)
  Sender: FDA-Public Use
  Company Number: FR-CELLTRION INC.-2017FR015203

PATIENT

DRUGS (4)
  1. ALPRAZOLAM. [Concomitant]
     Active Substance: ALPRAZOLAM
     Dosage: .25 MG, UNK
     Route: 048
  2. INFLECTRA [Suspect]
     Active Substance: INFLIXIMAB-DYYB
     Indication: CROHN^S DISEASE
     Dosage: UNK
     Route: 041
     Dates: start: 20170320, end: 20170630
  3. IMUREL                             /00001501/ [Suspect]
     Active Substance: AZATHIOPRINE SODIUM
     Indication: CROHN^S DISEASE
     Dosage: UNK
     Route: 048
  4. PAROXETIN                          /00830801/ [Concomitant]
     Active Substance: PAROXETINE HYDROCHLORIDE
     Dosage: 1 UNK, DAILY
     Route: 065

REACTIONS (7)
  - Arthralgia [Unknown]
  - Herpes simplex [Unknown]
  - Rash [Recovered/Resolved]
  - Mixed liver injury [Recovering/Resolving]
  - Middle insomnia [Unknown]
  - Musculoskeletal stiffness [Unknown]
  - Hyperthermia [Unknown]

NARRATIVE: CASE EVENT DATE: 20170511
